FAERS Safety Report 8503178-3 (Version None)
Quarter: 2012Q3

REPORT INFORMATION
  Report Type: 
  Country: None (occurrence: None)
  Receive Date: 20120711
  Receipt Date: 20120706
  Transmission Date: 20120928
  Serious: No
  Sender: FDA-Public Use
  Company Number: US-PFIZER INC-2012162730

PATIENT
  Age: 55 Year
  Sex: Male
  Weight: 90.703 kg

DRUGS (2)
  1. NORVASC [Suspect]
     Indication: HYPERTENSION
     Dosage: 2.5 MG, DAILY
     Route: 048
     Dates: start: 20120101
  2. NORVASC [Suspect]
     Dosage: 5 MG, DAILY
     Route: 048
     Dates: start: 20120101

REACTIONS (1)
  - BLOOD PRESSURE INADEQUATELY CONTROLLED [None]
